FAERS Safety Report 25764236 (Version 1)
Quarter: 2025Q3

REPORT INFORMATION
  Report Type: Spontaneous
  Country: US (occurrence: US)
  Receive Date: 20250905
  Receipt Date: 20250905
  Transmission Date: 20251020
  Serious: No
  Sender: DOMPE FARMACEUTICI
  Company Number: US-FARMAPROD-202501-0003

PATIENT
  Sex: Female
  Weight: 65.32 kg

DRUGS (14)
  1. OXERVATE [Suspect]
     Active Substance: CENEGERMIN-BKBJ
     Indication: Neurotrophic keratopathy
     Route: 047
     Dates: start: 20241121
  2. FLUOXETINE HYDROCHLORIDE [Concomitant]
     Active Substance: FLUOXETINE HYDROCHLORIDE
     Route: 048
  3. CLONAZEPAM [Concomitant]
     Active Substance: CLONAZEPAM
     Route: 048
  4. FLUTICASONE FUROATE\VILANTEROL TRIFENATATE [Concomitant]
     Active Substance: FLUTICASONE FUROATE\VILANTEROL TRIFENATATE
  5. FLUTICASONE PROPIONATE [Concomitant]
     Active Substance: FLUTICASONE PROPIONATE
     Route: 045
  6. ALBUTEROL SULFATE [Concomitant]
     Active Substance: ALBUTEROL SULFATE
  7. AMLODIPINE BESYLATE [Concomitant]
     Active Substance: AMLODIPINE BESYLATE
     Route: 048
  8. ALLOPURINOL [Concomitant]
     Active Substance: ALLOPURINOL
     Route: 048
  9. METFORMIN HYDROCHLORIDE [Concomitant]
     Active Substance: METFORMIN HYDROCHLORIDE
     Route: 048
  10. ONDANSETRON [Concomitant]
     Active Substance: ONDANSETRON
     Route: 048
  11. ALBUTEROL\IPRATROPIUM [Concomitant]
     Active Substance: ALBUTEROL\IPRATROPIUM
  12. SIMVASTATIN [Concomitant]
     Active Substance: SIMVASTATIN
     Route: 048
  13. METOPROLOL TARTRATE [Concomitant]
     Active Substance: METOPROLOL TARTRATE
     Route: 048
  14. RESTASIS [Concomitant]
     Active Substance: CYCLOSPORINE
     Route: 047

REACTIONS (1)
  - Eye pain [Unknown]
